FAERS Safety Report 18505447 (Version 3)
Quarter: 2021Q4

REPORT INFORMATION
  Report Type: Spontaneous
  Country: JP (occurrence: JP)
  Receive Date: 20201116
  Receipt Date: 20211115
  Transmission Date: 20220303
  Serious: Yes (Hospitalization, Other)
  Sender: FDA-Public Use
  Company Number: JP-BRISTOL-MYERS SQUIBB COMPANY-BMS-2020-061469

PATIENT
  Age: 71 Year
  Sex: Male
  Weight: 73.3 kg

DRUGS (14)
  1. OPDIVO [Suspect]
     Active Substance: NIVOLUMAB
     Indication: Metastatic renal cell carcinoma
     Dosage: 240 MILLIGRAM, Q2WK
     Route: 041
     Dates: start: 20200601, end: 20200713
  2. PREDONINE [Suspect]
     Active Substance: PREDNISOLONE
     Indication: Interstitial lung disease
     Dosage: 70 MILLIGRAM, QD
     Route: 048
     Dates: start: 20200713, end: 20200722
  3. PREDONINE [Suspect]
     Active Substance: PREDNISOLONE
     Dosage: 50 MILLIGRAM, QD
     Route: 048
     Dates: start: 20200723, end: 20200729
  4. PREDONINE [Suspect]
     Active Substance: PREDNISOLONE
     Dosage: 35 MILLIGRAM, QD
     Route: 048
     Dates: start: 20200730, end: 20200810
  5. PREDONINE [Suspect]
     Active Substance: PREDNISOLONE
     Dosage: 20 MILLIGRAM, QD
     Route: 048
     Dates: start: 20200811, end: 20200817
  6. PREDONINE [Suspect]
     Active Substance: PREDNISOLONE
     Dosage: 10 MILLIGRAM, QD
     Route: 048
     Dates: start: 20200818, end: 20200831
  7. PREDONINE [Suspect]
     Active Substance: PREDNISOLONE
     Dosage: 7.5 MILLIGRAM, QD
     Route: 048
     Dates: start: 20200901
  8. SULFAMETHOXAZOLE\TRIMETHOPRIM [Suspect]
     Active Substance: SULFAMETHOXAZOLE\TRIMETHOPRIM
     Indication: Prophylaxis
     Dosage: UNK
     Route: 048
     Dates: start: 20200723, end: 20200731
  9. LANSOPRAZOLE AMEL [Concomitant]
     Indication: Product used for unknown indication
     Dosage: 15 MILLIGRAM, QD
     Route: 048
     Dates: end: 20200713
  10. LANSOPRAZOLE AMEL [Concomitant]
     Dosage: 15 MILLIGRAM, QD
     Route: 048
     Dates: end: 20200727
  11. CILOSTAZOL [Concomitant]
     Active Substance: CILOSTAZOL
     Indication: Product used for unknown indication
     Dosage: 200 MILLIGRAM, Q12H
     Route: 048
     Dates: start: 20200410
  12. ALLOPURINOL [Concomitant]
     Active Substance: ALLOPURINOL
     Indication: Product used for unknown indication
     Dosage: 200 MILLIGRAM, Q12H
     Route: 048
  13. ATORVASTATIN CALCIUM TRIHYDRATE [Concomitant]
     Active Substance: ATORVASTATIN CALCIUM TRIHYDRATE
     Indication: Product used for unknown indication
     Dosage: 10 MILLIGRAM, QD
     Route: 048
  14. AMLODIPINE BESYLATE\AZILSARTAN [Concomitant]
     Active Substance: AMLODIPINE BESYLATE\AZILSARTAN
     Indication: Product used for unknown indication
     Dosage: 1 DOSAGE FORM, QD
     Route: 048
     Dates: end: 20200713

REACTIONS (4)
  - Interstitial lung disease [Recovering/Resolving]
  - Pneumothorax [Recovering/Resolving]
  - Renal disorder [Not Recovered/Not Resolved]
  - Drug eruption [Recovering/Resolving]

NARRATIVE: CASE EVENT DATE: 20200708
